FAERS Safety Report 8592488 (Version 2)
Quarter: 2013Q2

REPORT INFORMATION
  Report Type: Spontaneous
  Country: US (occurrence: US)
  Receive Date: 20120601
  Receipt Date: 20130429
  Transmission Date: 20140414
  Serious: No
  Sender: FDA-Public Use
  Company Number: US-ASTRAZENECA-2011SE69535

PATIENT
  Age: 62 Year
  Sex: Female

DRUGS (8)
  1. ATACAND HCT [Suspect]
     Dosage: 32 MG/12.5 MG, UNKNOWN FREQUENCY
     Route: 048
  2. CRESTOR [Suspect]
     Route: 048
  3. METFORMIN [Concomitant]
  4. METHIMAZOLE [Concomitant]
  5. GENERIC FOR TAPAZOLE [Concomitant]
  6. ZETIA [Concomitant]
  7. ASPIRIN [Concomitant]
  8. OYSTER SHELL CALCIUM [Concomitant]

REACTIONS (2)
  - Nasopharyngitis [Unknown]
  - Liver disorder [Unknown]
